FAERS Safety Report 9571218 (Version 1)
Quarter: 2013Q4

REPORT INFORMATION
  Report Type: Spontaneous
  Country: US (occurrence: US)
  Receive Date: 20131001
  Receipt Date: 20131001
  Transmission Date: 20140711
  Serious: Yes (Death, Hospitalization)
  Sender: FDA-Public Use
  Company Number: PHHY2013US108730

PATIENT
  Sex: 0

DRUGS (3)
  1. CUBICIN [Suspect]
     Indication: STAPHYLOCOCCAL BACTERAEMIA
     Dosage: 8 MG/KG, UNK
     Route: 051
  2. AMPICILLIN+SULBACTAM [Suspect]
     Indication: STAPHYLOCOCCAL BACTERAEMIA
  3. CEFTAROLINE FOSAMIL [Suspect]
     Indication: STAPHYLOCOCCAL BACTERAEMIA
     Dosage: 600 OT, Q12H

REACTIONS (4)
  - Death [Fatal]
  - Escherichia bacteraemia [Unknown]
  - Device related infection [Unknown]
  - Treatment failure [Unknown]
